FAERS Safety Report 7936843-7 (Version None)
Quarter: 2011Q4

REPORT INFORMATION
  Report Type: 
  Country: None (occurrence: None)
  Receive Date: 20111123
  Receipt Date: 20111116
  Transmission Date: 20120403
  Serious: Yes (Hospitalization)
  Sender: FDA-Public Use
  Company Number: SK-SANOFI-AVENTIS-2011SA075306

PATIENT
  Age: 67 Year
  Sex: Female

DRUGS (1)
  1. DRONEDARONE HCL [Suspect]
     Indication: ATRIAL FIBRILLATION
     Route: 048
     Dates: start: 20110808, end: 20110828

REACTIONS (2)
  - DIARRHOEA [None]
  - DEHYDRATION [None]
